FAERS Safety Report 7584116-7 (Version None)
Quarter: 2011Q2

REPORT INFORMATION
  Report Type: 
  Country: None (occurrence: None)
  Receive Date: 20110628
  Receipt Date: 20110628
  Transmission Date: 20111010
  Serious: Yes (Other)
  Sender: FDA-Public Use
  Company Number: None

PATIENT
  Sex: Female
  Weight: 95.2554 kg

DRUGS (1)
  1. TRILIPIX [Suspect]
     Indication: BLOOD CHOLESTEROL
     Dosage: 134 MG 1X A DAY CAP GLOB
     Dates: start: 20101210, end: 20110404

REACTIONS (7)
  - PYREXIA [None]
  - NAUSEA [None]
  - PAIN [None]
  - CHILLS [None]
  - MUSCULOSKELETAL DISORDER [None]
  - KIDNEY INFECTION [None]
  - RENAL IMPAIRMENT [None]
